FAERS Safety Report 4367577-6 (Version None)
Quarter: 2004Q2

REPORT INFORMATION
  Report Type: 
  Country: None (occurrence: None)
  Receive Date: 20040526
  Receipt Date: 20040407
  Transmission Date: 20050107
  Serious: No
  Sender: FDA-Public Use
  Company Number: 2004US002086

PATIENT
  Sex: Female

DRUGS (6)
  1. ALOXI [Suspect]
     Indication: PROPHYLAXIS OF NAUSEA AND VOMITING
     Dosage: 0.25 MG, SINGLE
     Dates: start: 20040101, end: 20040101
  2. ATROPINE [Suspect]
     Indication: ABDOMINAL PAIN
     Dosage: 0.4 MG
     Dates: start: 20040101, end: 20040101
  3. DEXAMETHASONE [Concomitant]
  4. CAMPTOSAR [Concomitant]
  5. FLUOROURACIL [Concomitant]
  6. LEUCOVORIN CALCIUM [Concomitant]

REACTIONS (4)
  - ABDOMINAL PAIN [None]
  - DRUG INEFFECTIVE [None]
  - NAUSEA [None]
  - VOMITING [None]
